FAERS Safety Report 4527538-0 (Version None)
Quarter: 2004Q4

REPORT INFORMATION
  Report Type: 
  Country: None (occurrence: None)
  Receive Date: 20041130
  Receipt Date: 20040927
  Transmission Date: 20050328
  Serious: No
  Sender: FDA-Public Use
  Company Number: WAES 0409USA02190

PATIENT
  Age: 83 Year
  Sex: Female

DRUGS (8)
  1. ZETIA [Suspect]
     Indication: HYPERCHOLESTEROLAEMIA
     Dates: start: 20040809
  2. DARVON [Concomitant]
  3. PLAQUENIL [Concomitant]
  4. ASPIRIN [Concomitant]
  5. CLONIDINE [Concomitant]
  6. FUROSEMIDE [Concomitant]
  7. POTASSIUM (UNSPECIFIED) [Concomitant]
  8. PREDNISONE [Concomitant]

REACTIONS (5)
  - ABNORMAL FAECES [None]
  - CARDIAC FLUTTER [None]
  - DECREASED APPETITE [None]
  - HUNGER [None]
  - INTESTINAL FUNCTIONAL DISORDER [None]
